FAERS Safety Report 8153382-1 (Version None)
Quarter: 2012Q1

REPORT INFORMATION
  Report Type: 
  Country: None (occurrence: None)
  Receive Date: 20120221
  Receipt Date: 20120207
  Transmission Date: 20120608
  Serious: Yes (Hospitalization, Other)
  Sender: FDA-Public Use
  Company Number: US-ROCHE-1011218

PATIENT
  Sex: Male

DRUGS (5)
  1. HERCEPTIN [Suspect]
     Dosage: OVER 30-90 MINS ON DAY 1 , 8, 15 EVERY 21 DAYS.
  2. GEMCITABINE HYDROCHLORIDE [Suspect]
     Indication: TRANSITIONAL CELL CARCINOMA
     Dosage: OVER 30 MINUTES ON DAY 1 AND 8 , EVERY 21.
     Route: 042
     Dates: start: 20020429
  3. HERCEPTIN [Suspect]
     Indication: TRANSITIONAL CELL CARCINOMA
     Dosage: DAY 1 OF FIRST CYCLE.
     Route: 042
     Dates: start: 20020429
  4. CARBOPLATIN [Suspect]
     Indication: TRANSITIONAL CELL CARCINOMA
     Dosage: 5 AUC IV OVER 15 MINS ON DAY 1 EVERY 21.
     Route: 042
     Dates: start: 20020429
  5. PACLITAXEL [Suspect]
     Indication: TRANSITIONAL CELL CARCINOMA
     Dosage: OVER 3 HRS ON DAY 1.
     Route: 042
     Dates: start: 20020429

REACTIONS (4)
  - DEHYDRATION [None]
  - FEBRILE NEUTROPENIA [None]
  - ANAEMIA [None]
  - PLATELET COUNT DECREASED [None]
